FAERS Safety Report 5608453-8 (Version None)
Quarter: 2008Q1

REPORT INFORMATION
  Report Type: 
  Country: None (occurrence: None)
  Receive Date: 20080125
  Receipt Date: 20080117
  Transmission Date: 20080703
  Serious: Yes (Other)
  Sender: FDA-Public Use
  Company Number: 2008001725

PATIENT
  Age: 75 Year
  Sex: Female
  Weight: 86.1834 kg

DRUGS (6)
  1. LUBRIDERM INTENSE REPARIR BODY LOTION (NO ACTIVE INGREDIENT) [Suspect]
     Dosage: ^A DIME SIZED^ ONCE DAILY, TOPICAL
     Route: 061
     Dates: start: 20080109, end: 20080112
  2. TRICOR [Concomitant]
  3. ANTIVERT (MECLOZINE HYDROCHLORIDE) [Concomitant]
  4. MULTI-VITAMINS [Concomitant]
  5. IBUPROFEN [Concomitant]
  6. HYDROCHLOROTHIAZIDE/TRIAMTERENE (HYDROCHLOROTHIAZIDE, TRIAMTERENE) [Concomitant]

REACTIONS (6)
  - BLISTER [None]
  - OEDEMA PERIPHERAL [None]
  - PAIN [None]
  - PRURITUS [None]
  - RASH [None]
  - URTICARIA [None]
